FAERS Safety Report 9462116 (Version 1)
Quarter: 2013Q3

REPORT INFORMATION
  Report Type: Spontaneous
  Country: US (occurrence: None)
  Receive Date: 20130815
  Receipt Date: 20130815
  Transmission Date: 20140515
  Serious: Yes (Hospitalization)
  Sender: FDA-Public Use
  Company Number: None

PATIENT
  Age: 62 Year
  Sex: Female
  Weight: 64.2 kg

DRUGS (15)
  1. VALPROIC ACID [Suspect]
     Indication: CONVULSION
     Route: 048
  2. PROZAC [Concomitant]
  3. MAXZIDE [Concomitant]
  4. ATENOLOL [Concomitant]
  5. ASA [Concomitant]
  6. LEVOTHYROXINE [Concomitant]
  7. VIMPAT [Concomitant]
  8. CENTRUM SILVER [Concomitant]
  9. FOLIC ACID [Concomitant]
  10. LAMOTRIGINE [Concomitant]
  11. TRAZODONE [Concomitant]
  12. CHOLECALCIFEROL [Concomitant]
  13. LITHIUM [Concomitant]
  14. LIPITOR [Concomitant]
  15. OMEGA 3 [Concomitant]

REACTIONS (6)
  - Encephalopathy [None]
  - Extra dose administered [None]
  - Asthenia [None]
  - Lethargy [None]
  - Somnolence [None]
  - Confusional state [None]
